FAERS Safety Report 10850583 (Version 1)
Quarter: 2015Q1

REPORT INFORMATION
  Report Type: Spontaneous
  Country: US (occurrence: US)
  Receive Date: 20150222
  Receipt Date: 20150222
  Transmission Date: 20150721
  Serious: No
  Sender: FDA-Public Use
  Company Number: US-ALLERGAN-1404132US

PATIENT
  Sex: Female
  Weight: 68.27 kg

DRUGS (3)
  1. BOTOX [Suspect]
     Active Substance: ONABOTULINUMTOXINA
     Indication: SKIN WRINKLING
     Dosage: 50 UNITS, SINGLE
     Dates: start: 20140206, end: 20140206
  2. BOTOX [Suspect]
     Active Substance: ONABOTULINUMTOXINA
     Indication: SKIN WRINKLING
     Dosage: UNK
     Dates: start: 20140217, end: 20140217
  3. BOTOX [Suspect]
     Active Substance: ONABOTULINUMTOXINA
     Indication: SKIN WRINKLING
     Dosage: UNK
     Dates: start: 20140218, end: 20140218

REACTIONS (7)
  - Skin warm [Unknown]
  - Eye pain [Unknown]
  - Eye swelling [Unknown]
  - Oropharyngeal pain [Unknown]
  - Eyelid oedema [Unknown]
  - Headache [Unknown]
  - Rash [Unknown]
